FAERS Safety Report 10120864 (Version 1)
Quarter: 2014Q2

REPORT INFORMATION
  Report Type: Spontaneous
  Country: US (occurrence: US)
  Receive Date: 20140425
  Receipt Date: 20140425
  Transmission Date: 20141212
  Serious: Yes (Hospitalization, Other)
  Sender: FDA-Public Use
  Company Number: US-BRISTOL-MYERS SQUIBB COMPANY-20634606

PATIENT
  Age: 61 Year
  Sex: Male
  Weight: 72.56 kg

DRUGS (3)
  1. BARACLUDE [Suspect]
     Indication: HEPATITIS
     Dates: start: 201211
  2. LASIX [Concomitant]
  3. SPIRONOLACTONE [Concomitant]

REACTIONS (5)
  - Cholecystitis infective [Unknown]
  - Thrombosis [Unknown]
  - Incision site infection [Unknown]
  - Nausea [Unknown]
  - Pain [Unknown]
